FAERS Safety Report 11246361 (Version 1)
Quarter: 2015Q2

REPORT INFORMATION
  Report Type: Spontaneous
  Country: US (occurrence: None)
  Receive Date: 20150616
  Receipt Date: 20150616
  Transmission Date: 20150821
  Serious: Yes (Other)
  Sender: FDA-Public Use
  Company Number: USW201406-000140

PATIENT
  Age: 77 Year
  Sex: Male
  Weight: 61.23 kg

DRUGS (10)
  1. STALEVO (CARBIDOPA, LEVODOPA, ENTACAPONE) [Concomitant]
  2. SEROQUEL (SIMVASTATIN) [Concomitant]
  3. ARICEPT (CLONEPEZIL) [Concomitant]
  4. APOKYN [Suspect]
     Active Substance: APOMORPHINE HYDROCHLORIDE
     Indication: PARKINSON^S DISEASE
     Dosage: 0.2 ML, AS NEEDED, SITE: ABDOMEN, SUBCUTANEOUS
     Route: 058
     Dates: start: 20130623, end: 20140715
  5. TRIMETHOBENZAMIDE [Concomitant]
     Active Substance: TRIMETHOBENZAMIDE
  6. AZILECT (RASAGILINE) [Concomitant]
  7. VITAMIN B12 [Concomitant]
     Active Substance: CYANOCOBALAMIN
  8. MIRAPEX (PRAMIPEXOLE) [Concomitant]
  9. ASPIRIN (ACETYLSALICYLIC ACID) [Concomitant]
     Active Substance: ASPIRIN
  10. COLACE (DOCUSATE) [Concomitant]

REACTIONS (7)
  - Confusional state [None]
  - Depression [None]
  - Agitation [None]
  - Drug ineffective [None]
  - Psychotic disorder [None]
  - Somnolence [None]
  - Paraesthesia [None]

NARRATIVE: CASE EVENT DATE: 20130623
